FAERS Safety Report 14684476 (Version 1)
Quarter: 2018Q1

REPORT INFORMATION
  Report Type: Spontaneous
  Country: US (occurrence: US)
  Receive Date: 20180327
  Receipt Date: 20180327
  Transmission Date: 20180509
  Serious: Yes (Hospitalization, Other)
  Sender: FDA-Public Use
  Company Number: None

PATIENT
  Age: 6 Year
  Sex: Male
  Weight: 17 kg

DRUGS (2)
  1. BIPHENTIN [Suspect]
     Active Substance: METHYLPHENIDATE
     Indication: ATTENTION DEFICIT/HYPERACTIVITY DISORDER
     Dosage: FREQUENCY - DAILY (5 DAYS OF 7)
     Route: 048
     Dates: start: 20160907, end: 20161109
  2. MELATONIN [Concomitant]
     Active Substance: MELATONIN

REACTIONS (2)
  - Drug ineffective [None]
  - Chillblains [None]

NARRATIVE: CASE EVENT DATE: 20161022
